FAERS Safety Report 4375536-2 (Version None)
Quarter: 2004Q2

REPORT INFORMATION
  Report Type: 
  Country: None (occurrence: None)
  Receive Date: 20040607
  Receipt Date: 20040524
  Transmission Date: 20050107
  Serious: Yes (Disabling)
  Sender: FDA-Public Use
  Company Number: 04P-163-0261944-00

PATIENT
  Age: 83 Year
  Sex: Male
  Weight: 83.4619 kg

DRUGS (3)
  1. HUMIRA [Suspect]
     Indication: RHEUMATOID ARTHRITIS
     Dosage: 40 ,G. 1 IN 2 WK, SUBCUTANEOUS
     Route: 058
     Dates: start: 20030501
  2. PREDNISONE [Concomitant]
  3. METHOTREXATE SODIUM [Concomitant]

REACTIONS (5)
  - ARTHRALGIA [None]
  - BLINDNESS UNILATERAL [None]
  - CONDITION AGGRAVATED [None]
  - MACULAR DEGENERATION [None]
  - NECK PAIN [None]
